FAERS Safety Report 21393930 (Version 4)
Quarter: 2024Q3

REPORT INFORMATION
  Report Type: Report from Study
  Country: EG (occurrence: EG)
  Receive Date: 20220930
  Receipt Date: 20240816
  Transmission Date: 20241017
  Serious: Yes (Other)
  Sender: NOVARTIS
  Company Number: EG-NOVARTISPH-NVSC2022EG218836

PATIENT
  Sex: Female
  Weight: 80 kg

DRUGS (7)
  1. COSENTYX [Suspect]
     Active Substance: SECUKINUMAB
     Indication: Psoriatic arthropathy
     Dosage: 1 DOSAGE FORM, Q3W (EVERY WEEK FOR 3 WEEKS AS A LOADING DOSE THEN, 1 PREFILLED PEN EVERY MONTH)
     Route: 065
     Dates: start: 201608, end: 202202
  2. COSENTYX [Suspect]
     Active Substance: SECUKINUMAB
     Dosage: 1 DOSAGE FORM, Q3W (EVERY WEEK FOR 3 WEEKS AS A LOADING DOSE THEN, 1 PREFILLED PEN EVERY MONTH)
     Route: 065
     Dates: start: 202205, end: 202205
  3. COSENTYX [Suspect]
     Active Substance: SECUKINUMAB
     Dosage: UNK
     Route: 065
     Dates: start: 202009, end: 202202
  4. COSENTYX [Suspect]
     Active Substance: SECUKINUMAB
     Dosage: UNK (FROM JUL/ AUG 2016 LOADING DOSE THEN 1 PREFILLED PEN EVERY MONTH THEN 2 PREFILLED PENS EVERY MO
     Route: 058
     Dates: end: 202309
  5. VITAMINS [Concomitant]
     Active Substance: VITAMINS
     Indication: Supplementation therapy
     Dosage: UNK, QD
     Route: 065
     Dates: start: 2008
  6. TAMIFLU [Concomitant]
     Active Substance: OSELTAMIVIR PHOSPHATE
     Indication: Product used for unknown indication
     Dosage: UNK
     Route: 065
  7. VITAMIN C [Concomitant]
     Active Substance: ASCORBIC ACID
     Indication: Supplementation therapy
     Dosage: UNK, QD
     Route: 065
     Dates: start: 2021

REACTIONS (33)
  - Depression [Not Recovered/Not Resolved]
  - Psoriasis [Not Recovered/Not Resolved]
  - Pain [Not Recovered/Not Resolved]
  - Dysstasia [Not Recovered/Not Resolved]
  - Blood cholesterol increased [Recovering/Resolving]
  - Vitamin D deficiency [Recovering/Resolving]
  - C-reactive protein increased [Recovered/Resolved]
  - Insomnia [Not Recovered/Not Resolved]
  - COVID-19 [Recovered/Resolved]
  - Anosmia [Recovered/Resolved]
  - Cough [Recovered/Resolved]
  - Oxygen saturation decreased [Recovered/Resolved]
  - Rhinorrhoea [Recovered/Resolved]
  - Feeding disorder [Recovered/Resolved]
  - Pyrexia [Recovered/Resolved]
  - Fatigue [Not Recovered/Not Resolved]
  - Bacterial infection [Recovered/Resolved]
  - Viral infection [Recovered/Resolved]
  - Psoriatic arthropathy [Recovered/Resolved]
  - Psoriatic arthropathy [Recovering/Resolving]
  - Red blood cell sedimentation rate increased [Recovered/Resolved]
  - Hypoaesthesia [Recovered/Resolved]
  - Hypoaesthesia [Recovered/Resolved]
  - Muscular weakness [Recovered/Resolved]
  - Muscular weakness [Recovered/Resolved]
  - Ascites [Unknown]
  - Anaemia [Unknown]
  - Respiratory tract infection [Unknown]
  - Abdominal pain [Recovered/Resolved]
  - Vomiting [Unknown]
  - Bronchitis [Recovered/Resolved]
  - Off label use [Recovered/Resolved]
  - Off label use [Unknown]

NARRATIVE: CASE EVENT DATE: 20160101
